FAERS Safety Report 6370670-X (Version None)
Quarter: 2009Q3

REPORT INFORMATION
  Report Type: 
  Country: None (occurrence: None)
  Receive Date: 20090923
  Receipt Date: 20070430
  Transmission Date: 20100115
  Serious: Yes (Other)
  Sender: FDA-Public Use
  Company Number: US-ASTRAZENECA-2006UW26194

PATIENT
  Age: 21344 Day
  Sex: Female
  Weight: 71.7 kg

DRUGS (18)
  1. SEROQUEL [Suspect]
     Indication: SLEEP DISORDER
     Route: 048
     Dates: start: 20020101
  2. SEROQUEL [Suspect]
     Dosage: 25 MG-1-2 PO QHS PRN
     Route: 048
     Dates: start: 20050525
  3. RISPERDAL [Concomitant]
  4. ZYPREXA [Concomitant]
  5. HYDROCHLOROTHIAZIDE [Concomitant]
     Route: 048
  6. NORVASC [Concomitant]
     Route: 048
  7. SINGULAIR [Concomitant]
     Route: 048
  8. CYCLOBENZAPRINE HCL [Concomitant]
     Route: 048
  9. BIAXIN [Concomitant]
     Route: 048
  10. PREDNISONE [Concomitant]
     Indication: BRONCHITIS
  11. IBUPROFEN [Concomitant]
     Route: 048
  12. VYTORIN [Concomitant]
     Dosage: 10-20 MG TABLET 1 (ONE) TABLET PO QD
     Route: 048
  13. ZYRTEC [Concomitant]
     Route: 048
  14. AMITRIPTYLINE HYDROCHLORIDE [Concomitant]
     Route: 048
  15. ZOLOFT [Concomitant]
     Route: 048
  16. LOVASTATIN [Concomitant]
     Route: 048
  17. AVANDIA [Concomitant]
     Dosage: STRENGTH 2 MG-4 MG
     Route: 048
  18. THEOPHYLLINE [Concomitant]

REACTIONS (3)
  - DIABETES MELLITUS [None]
  - TYPE 2 DIABETES MELLITUS [None]
  - VISION BLURRED [None]
